FAERS Safety Report 23079288 (Version 1)
Quarter: 2023Q4

REPORT INFORMATION
  Report Type: Spontaneous
  Country: JP (occurrence: JP)
  Receive Date: 20231018
  Receipt Date: 20231018
  Transmission Date: 20240110
  Serious: Yes (Other)
  Sender: FDA-Public Use
  Company Number: JP-PFIZER INC-PV202300170074

PATIENT
  Age: 75 Year
  Sex: Female

DRUGS (4)
  1. AZULFIDINE EN-TABS [Suspect]
     Active Substance: SULFASALAZINE
     Dosage: 500 MG, 2X/DAY (EVERY 12 HOURS)
     Route: 048
  2. AZULFIDINE EN-TABS [Suspect]
     Active Substance: SULFASALAZINE
     Dosage: 1000 MG, 2X/DAY (EVERY 12 HOURS)
     Route: 048
     Dates: start: 20230615, end: 20230705
  3. AZULFIDINE EN-TABS [Suspect]
     Active Substance: SULFASALAZINE
     Dosage: 500 MG, 2X/DAY (EVERY 12 HOURS)
     Route: 048
  4. IGURATIMOD [Concomitant]
     Active Substance: IGURATIMOD

REACTIONS (2)
  - Rheumatoid arthritis [Unknown]
  - Incorrect dosage administered [Unknown]
